FAERS Safety Report 8601026 (Version 2)
Quarter: 2013Q1

REPORT INFORMATION
  Report Type: Report from Study
  Country: US (occurrence: US)
  Receive Date: 20120606
  Receipt Date: 20130325
  Transmission Date: 20140127
  Serious: Yes (Death, Other)
  Sender: FDA-Public Use
  Company Number: US-ROCHE-1072007

PATIENT
  Sex: 0

DRUGS (4)
  1. ERLOTINIB [Suspect]
     Indication: GLIOBLASTOMA
     Dosage: 150-200MG DAILY OR 500-600MG DAILY FOR PATIONS ON ENZYME-INDUCING ANTIEPILEPTIC DRUGS
     Route: 065
  2. BEVACIZUMAB [Suspect]
     Indication: GLIOBLASTOMA
     Route: 065
  3. TEMOZOLOMIDE [Suspect]
     Indication: GLIOBLASTOMA
     Dosage: AFTER RADIOTHERAPY, 5 DAY PER 28 DAY CYCLE
     Route: 065
  4. TEMOZOLOMIDE [Suspect]
     Route: 065

REACTIONS (7)
  - Aspergillus infection [Fatal]
  - Lymphopenia [Unknown]
  - Thrombocytopenia [Unknown]
  - Neutropenia [Unknown]
  - Diarrhoea [Unknown]
  - Weight decreased [Unknown]
  - Fatigue [Unknown]
